FAERS Safety Report 8308180-2 (Version None)
Quarter: 2012Q2

REPORT INFORMATION
  Report Type: 
  Country: None (occurrence: None)
  Receive Date: 20120424
  Receipt Date: 20120418
  Transmission Date: 20120825
  Serious: Yes (Hospitalization)
  Sender: FDA-Public Use
  Company Number: US-BAYER-200944108NA

PATIENT
  Age: 48 Year
  Sex: Female
  Weight: 79.365 kg

DRUGS (4)
  1. ALBUTEROL [Concomitant]
     Dosage: INHALER
  2. SINGULAIR [Concomitant]
     Dosage: DAILY DOSE 10 MG
     Route: 048
  3. YASMIN [Suspect]
     Indication: VAGINAL HAEMORRHAGE
     Dosage: 1 DF (DAILY DOSE), QD, ORAL
     Route: 048
     Dates: start: 20031101, end: 20031201
  4. ADVAIR DISKUS 100/50 [Concomitant]
     Dosage: INHALER

REACTIONS (5)
  - OEDEMA PERIPHERAL [None]
  - PULMONARY EMBOLISM [None]
  - THROMBOSIS [None]
  - MUSCLE SPASMS [None]
  - DEEP VEIN THROMBOSIS [None]
